FAERS Safety Report 13109799 (Version 1)
Quarter: 2017Q1

REPORT INFORMATION
  Report Type: Spontaneous
  Country: US (occurrence: US)
  Receive Date: 20170112
  Receipt Date: 20170112
  Transmission Date: 20170428
  Serious: Yes (Other)
  Sender: FDA-Public Use
  Company Number: US-ROCHE-1100681

PATIENT
  Age: 56 Year
  Sex: Male

DRUGS (14)
  1. ATENOLOL. [Concomitant]
     Active Substance: ATENOLOL
     Route: 048
  2. ACTIVASE [Suspect]
     Active Substance: ALTEPLASE
     Route: 065
  3. MICRONASE [Concomitant]
     Active Substance: GLYBURIDE
     Route: 065
  4. HEPARIN [Concomitant]
     Active Substance: HEPARIN SODIUM
     Dosage: 2000 UNITS
     Route: 040
  5. NITROGLYCERINE [Concomitant]
     Active Substance: NITROGLYCERIN
     Dosage: 1/150
     Route: 060
  6. COLACE [Concomitant]
     Active Substance: DOCUSATE SODIUM
     Route: 048
  7. XANAX [Concomitant]
     Active Substance: ALPRAZOLAM
     Route: 048
  8. PROCAN SR [Concomitant]
     Active Substance: PROCAINAMIDE HYDROCHLORIDE
     Route: 048
  9. PROCAN SR [Concomitant]
     Active Substance: PROCAINAMIDE HYDROCHLORIDE
     Route: 048
  10. ACTIVASE [Suspect]
     Active Substance: ALTEPLASE
     Indication: ACUTE MYOCARDIAL INFARCTION
     Route: 042
  11. ACTIVASE [Suspect]
     Active Substance: ALTEPLASE
     Route: 065
  12. ECOTRIN [Concomitant]
     Active Substance: ASPIRIN
     Dosage: 5 GRAINS
     Route: 048
  13. PROCAN SR [Concomitant]
     Active Substance: PROCAINAMIDE HYDROCHLORIDE
     Route: 048
  14. ASPIRIN. [Concomitant]
     Active Substance: ASPIRIN

REACTIONS (2)
  - Ventricular fibrillation [Unknown]
  - Ventricular extrasystoles [Unknown]
